FAERS Safety Report 22282543 (Version 3)
Quarter: 2023Q2

REPORT INFORMATION
  Report Type: Spontaneous
  Country: PL (occurrence: PL)
  Receive Date: 20230504
  Receipt Date: 20230516
  Transmission Date: 20230722
  Serious: Yes (Other)
  Sender: FDA-Public Use
  Company Number: PL-BELUPO-SafetyCase005073

PATIENT
  Age: 93 Year
  Sex: Male

DRUGS (2)
  1. SOLIFENACIN [Suspect]
     Active Substance: SOLIFENACIN
     Indication: Urinary incontinence
     Dosage: 5 MG, ONCE DAILY (5 MG/24H)
     Route: 065
  2. HYDROXYZINE [Interacting]
     Active Substance: HYDROXYZINE HYDROCHLORIDE
     Indication: Sleep disorder
     Dosage: 10 MG, ONCE DAILY(10 MG/NIGHT)
     Route: 065

REACTIONS (3)
  - Delirium [Unknown]
  - Urinary incontinence [Unknown]
  - Sleep disorder [Unknown]
